FAERS Safety Report 6698674-8 (Version None)
Quarter: 2010Q2

REPORT INFORMATION
  Report Type: 
  Country: None (occurrence: None)
  Receive Date: 20100427
  Receipt Date: 20100223
  Transmission Date: 20101027
  Serious: No
  Sender: FDA-Public Use
  Company Number: US-ASTRAZENECA-2010SE07898

PATIENT
  Age: 53 Year
  Sex: Female

DRUGS (6)
  1. ZOMIG [Suspect]
     Indication: MIGRAINE
     Route: 048
  2. LISINOPRIL [Concomitant]
     Indication: HYPERTENSION
  3. HYDROCORTISONE [Concomitant]
  4. VALIUM [Concomitant]
  5. NEURONTIN [Concomitant]
     Indication: JOINT SWELLING
  6. PREDNISONE TAB [Concomitant]
     Indication: JOINT SWELLING

REACTIONS (2)
  - DIZZINESS [None]
  - FATIGUE [None]
